FAERS Safety Report 10784805 (Version 2)
Quarter: 2015Q1

REPORT INFORMATION
  Report Type: Spontaneous
  Country: US (occurrence: None)
  Receive Date: 20150209
  Receipt Date: 20150223
  Transmission Date: 20150721
  Serious: Yes (Hospitalization)
  Sender: FDA-Public Use
  Company Number: HYP201501-000010

PATIENT
  Age: 5 Year
  Sex: Female

DRUGS (6)
  1. LEVOCARNITINE. [Concomitant]
     Active Substance: LEVOCARNITINE
  2. KEPPRA [Concomitant]
     Active Substance: LEVETIRACETAM
  3. PHENOBARBITAL. [Concomitant]
     Active Substance: PHENOBARBITAL
  4. OMEPRAZOLE. [Concomitant]
     Active Substance: OMEPRAZOLE
  5. ALBUTEROL (SALBUTAMOL) [Concomitant]
     Active Substance: ALBUTEROL
  6. RAVICTI [Suspect]
     Active Substance: GLYCEROL PHENYLBUTYRATE
     Indication: UREA CYCLE ENZYME DEFICIENCY
     Dates: start: 201409, end: 20150118

REACTIONS (10)
  - Abdominal infection [None]
  - Pneumonia [None]
  - Viral infection [None]
  - Pneumonia viral [None]
  - Respiratory tract oedema [None]
  - Weaning failure [None]
  - Hypokalaemia [None]
  - Metabolic disorder [None]
  - Hyperammonaemic crisis [None]
  - Disease complication [None]

NARRATIVE: CASE EVENT DATE: 20150118
